FAERS Safety Report 8859980 (Version 3)
Quarter: 2014Q4

REPORT INFORMATION
  Report Type: Spontaneous
  Country: JP (occurrence: JP)
  Receive Date: 20121025
  Receipt Date: 20141114
  Transmission Date: 20150529
  Serious: Yes (Death, Other)
  Sender: FDA-Public Use
  Company Number: PHHY2010JP89078

PATIENT
  Age: 56 Year
  Sex: Male

DRUGS (18)
  1. AFINITOR [Suspect]
     Active Substance: EVEROLIMUS
     Dosage: 5 MG, DAILY
     Route: 048
     Dates: start: 20100812, end: 20101025
  2. SUNITINIB MALATE [Concomitant]
     Active Substance: SUNITINIB MALATE
     Indication: METASTATIC RENAL CELL CARCINOMA
     Dosage: 25 MG, UNK
     Route: 048
     Dates: start: 20091124, end: 20100427
  3. NEXAVAR [Concomitant]
     Active Substance: SORAFENIB
     Route: 065
     Dates: start: 200911
  4. AFINITOR [Suspect]
     Active Substance: EVEROLIMUS
     Dosage: 5 MG, QD
     Route: 048
     Dates: start: 20100614, end: 20100622
  5. NEXAVAR [Concomitant]
     Active Substance: SORAFENIB
     Indication: METASTATIC RENAL CELL CARCINOMA
     Dosage: 800 MG, UNK
     Route: 048
     Dates: start: 20090817, end: 20091027
  6. MAGMITT [Concomitant]
     Active Substance: MAGNESIUM OXIDE
     Indication: METASTATIC RENAL CELL CARCINOMA
     Dosage: 660 MG, UNK
     Route: 048
     Dates: end: 20110331
  7. UREA. [Concomitant]
     Active Substance: UREA
     Indication: PRODUCT USED FOR UNKNOWN INDICATION
     Dosage: UNK
     Route: 065
  8. AFINITOR [Suspect]
     Active Substance: EVEROLIMUS
     Indication: METASTATIC RENAL CELL CARCINOMA
     Dosage: 10 MG, QD
     Route: 048
     Dates: start: 20100513, end: 20100524
  9. AFINITOR [Suspect]
     Active Substance: EVEROLIMUS
     Dosage: 5 MG, QD
     Route: 048
     Dates: start: 20100527, end: 20100610
  10. AFINITOR [Suspect]
     Active Substance: EVEROLIMUS
     Dosage: 5 MG, DAILY
     Route: 048
     Dates: start: 20101026, end: 20110331
  11. HYPEN [Concomitant]
     Active Substance: ETODOLAC
     Indication: METASTATIC RENAL CELL CARCINOMA
     Dosage: 600 MG, UNK
     Route: 048
     Dates: end: 20110331
  12. AFINITOR [Suspect]
     Active Substance: EVEROLIMUS
     Dosage: 5 MG, QD
     Route: 048
     Dates: start: 20100623, end: 20100729
  13. SELBEX [Concomitant]
     Active Substance: TEPRENONE
     Indication: METASTATIC RENAL CELL CARCINOMA
     Dosage: 150 MG, UNK
     Route: 048
     Dates: end: 20110331
  14. FERRO-GRADUMET [Concomitant]
     Active Substance: FERROUS SULFATE\FERROUS SULFATE, DRIED
     Indication: METASTATIC RENAL CELL CARCINOMA
     Dosage: 105 MG, QD
     Route: 048
     Dates: start: 20100701, end: 20110331
  15. FERROUS SULFATE [Concomitant]
     Active Substance: FERROUS SULFATE\FERROUS SULFATE, DRIED
     Indication: METASTATIC RENAL CELL CARCINOMA
  16. KENALOG [Concomitant]
     Active Substance: TRIAMCINOLONE ACETONIDE
     Indication: PROPHYLAXIS
     Dosage: UNK
     Route: 001
     Dates: end: 20110331
  17. AFINITOR [Suspect]
     Active Substance: EVEROLIMUS
     Dosage: 2.5 MG, QD
     Route: 048
  18. INTERFERON ALFA NOS [Concomitant]
     Active Substance: INTERFERON ALFA-2A OR INTERFERON ALFA-2B
     Indication: METASTATIC RENAL CELL CARCINOMA
     Dosage: 6000000 IU, UNK
     Route: 065
     Dates: start: 20090817, end: 20091105

REACTIONS (17)
  - Gamma-glutamyltransferase increased [Recovering/Resolving]
  - Fatigue [Unknown]
  - Haemoglobin abnormal [Unknown]
  - Metastases to adrenals [Unknown]
  - Stomatitis [Recovered/Resolved]
  - Platelet count decreased [Recovered/Resolved]
  - Anaemia [Recovering/Resolving]
  - Neoplasm malignant [Fatal]
  - Disease progression [Unknown]
  - Epistaxis [Recovering/Resolving]
  - Malaise [Fatal]
  - Thrombocytopenia [Recovered/Resolved]
  - Cough [Unknown]
  - Interstitial lung disease [Recovered/Resolved]
  - Red blood cell count decreased [Recovering/Resolving]
  - General physical health deterioration [Fatal]
  - Decreased appetite [Fatal]

NARRATIVE: CASE EVENT DATE: 20100517
